FAERS Safety Report 8581155-4 (Version None)
Quarter: 2012Q3

REPORT INFORMATION
  Report Type: 
  Country: None (occurrence: None)
  Receive Date: 20120809
  Receipt Date: 20120606
  Transmission Date: 20120928
  Serious: Yes (Hospitalization, Other)
  Sender: FDA-Public Use
  Company Number: KR-COVIDIEN/TYCO HEALTHCARE/MALLINCKRODT-T201203022

PATIENT
  Age: 46 Year
  Sex: Male

DRUGS (5)
  1. MORPHINE [Suspect]
     Dosage: 4.0 ML, ON-DEMAND BOLUS
     Route: 008
  2. TRAMADOL HCL [Suspect]
     Indication: PAIN
     Dosage: 50 MG, UNK
  3. MORPHINE SULFATE [Suspect]
     Indication: PAIN
     Dosage: 0.3 MG, SINGLE
     Route: 037
  4. MORPHINE [Suspect]
     Dosage: 1.0 ML/HOUR BASAL RATE
     Route: 008
  5. MORPHINE [Suspect]
     Indication: PAIN
     Dosage: 0.5 ML/HOUR BASAL RATE
     Route: 008

REACTIONS (5)
  - DYSARTHRIA [None]
  - RESPIRATORY DEPRESSION [None]
  - DRUG EFFECT DECREASED [None]
  - PNEUMONIA ASPIRATION [None]
  - SEDATION [None]
